FAERS Safety Report 4761231-4 (Version None)
Quarter: 2005Q3

REPORT INFORMATION
  Report Type: 
  Country: None (occurrence: None)
  Receive Date: 20050902
  Receipt Date: 20050902
  Transmission Date: 20060218
  Serious: Yes (Hospitalization)
  Sender: FDA-Public Use
  Company Number: None

PATIENT
  Sex: Female
  Weight: 32 kg

DRUGS (1)
  1. DDAVP [Suspect]
     Indication: ENURESIS
     Dosage: 0.2 MG TWO TABS QHS
     Dates: start: 20050801

REACTIONS (2)
  - BLOOD SODIUM DECREASED [None]
  - CONVULSION [None]
